FAERS Safety Report 9978247 (Version 2)
Quarter: 2014Q1

REPORT INFORMATION
  Report Type: Spontaneous
  Country: US (occurrence: US)
  Receive Date: 20140306
  Receipt Date: 20140306
  Transmission Date: 20141002
  Serious: Yes (Other)
  Sender: FDA-Public Use
  Company Number: US-GE HEALTHCARE MEDICAL DIAGNOSTICS-OSCN-PR-0903S-0160

PATIENT
  Age: 67 Year
  Sex: Female

DRUGS (4)
  1. OMNISCAN [Suspect]
     Indication: CHOLELITHIASIS
     Route: 042
     Dates: start: 20051230, end: 20051230
  2. OMNISCAN [Suspect]
     Indication: PANCREATITIS
  3. GADOLINIUM (UNSPECIFIED) [Suspect]
     Indication: PRODUCT USED FOR UNKNOWN INDICATION
     Route: 065
     Dates: start: 20030115, end: 20030115
  4. MULTIHANCE [Suspect]
     Indication: PRODUCT USED FOR UNKNOWN INDICATION
     Route: 042
     Dates: start: 20060308, end: 20060308

REACTIONS (1)
  - Nephrogenic systemic fibrosis [Not Recovered/Not Resolved]
